FAERS Safety Report 5486053-0 (Version None)
Quarter: 2007Q4

REPORT INFORMATION
  Report Type: 
  Country: None (occurrence: None)
  Receive Date: 20071015
  Receipt Date: 20071004
  Transmission Date: 20080405
  Serious: Yes (Hospitalization, Other)
  Sender: FDA-Public Use
  Company Number: US-PFIZER INC-2007083478

PATIENT
  Sex: Male

DRUGS (1)
  1. XANAX [Suspect]

REACTIONS (5)
  - AGGRESSION [None]
  - DEPRESSION [None]
  - NERVOUSNESS [None]
  - PARANOIA [None]
  - SUICIDAL IDEATION [None]
